FAERS Safety Report 25495284 (Version 1)
Quarter: 2025Q2

REPORT INFORMATION
  Report Type: Spontaneous
  Country: FR (occurrence: FR)
  Receive Date: 20250630
  Receipt Date: 20250630
  Transmission Date: 20250716
  Serious: Yes (Other)
  Sender: TEVA
  Company Number: None

PATIENT
  Age: 20 Year
  Sex: Female
  Weight: 48 kg

DRUGS (10)
  1. OLANZAPINE [Suspect]
     Active Substance: OLANZAPINE
     Indication: Depression
     Route: 048
     Dates: start: 20250523, end: 20250604
  2. MIRTAZAPINE [Suspect]
     Active Substance: MIRTAZAPINE
     Indication: Depression
     Route: 048
     Dates: start: 202504
  3. BUSPIRONE [Concomitant]
     Active Substance: BUSPIRONE HYDROCHLORIDE
     Indication: Anxiety
     Dosage: BUSPIRONE (HYDROCHLORIDE)
     Route: 048
     Dates: start: 202504
  4. VALIUM [Concomitant]
     Active Substance: DIAZEPAM
     Indication: Sedation
     Dosage: VALIUM 1 PER CENT ROCHE, ORAL SOLUTION IN DROPS
     Route: 048
     Dates: start: 20250522, end: 20250526
  5. CYAMEMAZINE [Suspect]
     Active Substance: CYAMEMAZINE
     Indication: Sedation
     Dosage: ORAL SOLUTION IN DROPS
     Route: 048
     Dates: start: 20250522, end: 20250526
  6. KETAMINE [Concomitant]
     Active Substance: KETAMINE
     Indication: Sedation
     Route: 042
     Dates: start: 20250526, end: 20250526
  7. KETAMINE [Concomitant]
     Active Substance: KETAMINE
     Indication: Sedation
     Route: 042
     Dates: start: 20250602, end: 20250602
  8. FLUOXETINE [Suspect]
     Active Substance: FLUOXETINE HYDROCHLORIDE
     Indication: Depression
     Dosage: FLUOXETINE HYDROCHLORIDE
     Route: 048
     Dates: start: 202505, end: 20250522
  9. FLUOXETINE [Suspect]
     Active Substance: FLUOXETINE HYDROCHLORIDE
     Indication: Depression
     Route: 048
     Dates: start: 20250522
  10. LORAZEPAM [Concomitant]
     Active Substance: LORAZEPAM
     Indication: Sedation
     Route: 048
     Dates: start: 20250526, end: 20250604

REACTIONS (2)
  - Urinary retention [Recovered/Resolved]
  - Urinary retention [Recovered/Resolved]

NARRATIVE: CASE EVENT DATE: 20250526
